FAERS Safety Report 12182677 (Version 1)
Quarter: 2016Q1

REPORT INFORMATION
  Report Type: Spontaneous
  Country: ES (occurrence: ES)
  Receive Date: 20160316
  Receipt Date: 20160316
  Transmission Date: 20160526
  Serious: Yes (Life-Threatening)
  Sender: FDA-Public Use
  Company Number: ES-ACCORD-038675

PATIENT
  Age: 72 Year
  Sex: Male

DRUGS (4)
  1. EPTIFIBATIDE. [Concomitant]
     Active Substance: EPTIFIBATIDE
  2. AAS [Concomitant]
     Active Substance: ASPIRIN
     Indication: PERCUTANEOUS CORONARY INTERVENTION
     Dosage: LOADING DOSE
  3. HEPARIN [Concomitant]
     Active Substance: HEPARIN SODIUM
     Indication: VASCULAR STENT THROMBOSIS
     Dosage: LOADING DOSE
     Route: 042
  4. CLOPIDOGREL [Suspect]
     Active Substance: CLOPIDOGREL BISULFATE
     Indication: ACUTE MYOCARDIAL INFARCTION
     Dosage: LOADING DOSE

REACTIONS (3)
  - Drug resistance [Unknown]
  - Vascular stent thrombosis [Unknown]
  - Acute myocardial infarction [Unknown]
